FAERS Safety Report 6337978-5 (Version None)
Quarter: 2009Q3

REPORT INFORMATION
  Report Type: 
  Country: None (occurrence: None)
  Receive Date: 20090902
  Receipt Date: 20090820
  Transmission Date: 20100115
  Serious: Yes (Hospitalization)
  Sender: FDA-Public Use
  Company Number: JP-MERCK-0908USA04828

PATIENT
  Age: 18 Year
  Sex: Male

DRUGS (3)
  1. PEPCID [Suspect]
     Indication: CROHN'S DISEASE
     Route: 048
  2. MESALAMINE [Concomitant]
     Indication: CROHN'S DISEASE
     Route: 065
  3. MESALAMINE [Concomitant]
     Route: 065

REACTIONS (2)
  - CROHN'S DISEASE [None]
  - DRUG INEFFECTIVE FOR UNAPPROVED INDICATION [None]
